FAERS Safety Report 15808194 (Version 4)
Quarter: 2020Q1

REPORT INFORMATION
  Report Type: Report from Study
  Country: BR (occurrence: BR)
  Receive Date: 20190110
  Receipt Date: 20200228
  Transmission Date: 20200409
  Serious: Yes (Hospitalization, Other)
  Sender: FDA-Public Use
  Company Number: BR-JNJFOC-20181014939

PATIENT
  Age: 35 Year
  Sex: Female
  Weight: 52 kg

DRUGS (16)
  1. STELARA [Suspect]
     Active Substance: USTEKINUMAB
     Indication: CROHN^S DISEASE
     Dosage: 2 VIALS ON WEEK 0 INTRAVENOUS
     Route: 042
     Dates: start: 20180920
  2. SULFASALAZINE. [Concomitant]
     Active Substance: SULFASALAZINE
     Route: 065
  3. FOLIC ACID. [Concomitant]
     Active Substance: FOLIC ACID
     Route: 065
  4. CALCIUM CARBONATE. [Concomitant]
     Active Substance: CALCIUM CARBONATE
     Dosage: 1 TABLET
     Route: 065
  5. ASACOL [Concomitant]
     Active Substance: MESALAMINE
     Route: 065
  6. LACTULOSE. [Concomitant]
     Active Substance: LACTULOSE
     Route: 065
  7. STELARA [Suspect]
     Active Substance: USTEKINUMAB
     Route: 058
  8. INFLIXIMAB, RECOMBINANT [Suspect]
     Active Substance: INFLIXIMAB
     Indication: PRODUCT USED FOR UNKNOWN INDICATION
     Route: 042
  9. ALENDRONATE [Concomitant]
     Active Substance: ALENDRONATE SODIUM
     Route: 065
  10. STELARA [Suspect]
     Active Substance: USTEKINUMAB
     Route: 058
     Dates: start: 20181114
  11. CALCIUM [Concomitant]
     Active Substance: CALCIUM
     Route: 065
  12. DESOGESTREL [Concomitant]
     Active Substance: DESOGESTREL
     Route: 065
  13. AZATHIOPRINE. [Concomitant]
     Active Substance: AZATHIOPRINE
     Dosage: 2 TABLETS IN THE MORNING
     Route: 065
  14. BISOPROLOL [Concomitant]
     Active Substance: BISOPROLOL
     Route: 065
     Dates: start: 2017
  15. VITAMIN D [Concomitant]
     Active Substance: VITAMIN D NOS
     Route: 065
  16. PROCTIUM [Concomitant]
     Route: 065

REACTIONS (15)
  - Hospitalisation [Unknown]
  - Nausea [Not Recovered/Not Resolved]
  - Weight decreased [Unknown]
  - Abdominal pain upper [Not Recovered/Not Resolved]
  - Blister [Unknown]
  - Stress [Unknown]
  - Rectal haemorrhage [Not Recovered/Not Resolved]
  - Fibromyalgia [Recovering/Resolving]
  - Vomiting [Not Recovered/Not Resolved]
  - Atrial enlargement [Unknown]
  - Anaemia [Recovering/Resolving]
  - Peripheral swelling [Not Recovered/Not Resolved]
  - Constipation [Not Recovered/Not Resolved]
  - Acarodermatitis [Not Recovered/Not Resolved]
  - Dissociative disorder [Unknown]

NARRATIVE: CASE EVENT DATE: 2018
